FAERS Safety Report 9314284 (Version 1)
Quarter: 2013Q2

REPORT INFORMATION
  Report Type: Spontaneous
  Country: BR (occurrence: BR)
  Receive Date: 20130529
  Receipt Date: 20130529
  Transmission Date: 20140414
  Serious: Yes (Other)
  Sender: FDA-Public Use
  Company Number: PHHY2013BR052342

PATIENT
  Age: 6 Year
  Sex: Male
  Weight: 38 kg

DRUGS (2)
  1. RITALINA [Suspect]
     Indication: ATTENTION DEFICIT/HYPERACTIVITY DISORDER
     Dosage: 0.5 DF, DAILY
     Route: 048
     Dates: end: 201211
  2. RITALINA [Suspect]
     Dosage: 0.5 DF, DAILY
     Route: 048
     Dates: start: 201302, end: 20130514

REACTIONS (3)
  - Blood cholesterol increased [Unknown]
  - Weight increased [Not Recovered/Not Resolved]
  - Wrong technique in drug usage process [Unknown]
